FAERS Safety Report 22263655 (Version 1)
Quarter: 2023Q2

REPORT INFORMATION
  Report Type: Spontaneous
  Country: FR (occurrence: FR)
  Receive Date: 20230428
  Receipt Date: 20230428
  Transmission Date: 20230721
  Serious: Yes (Death)
  Sender: FDA-Public Use
  Company Number: None

PATIENT
  Age: 62 Year
  Sex: Female

DRUGS (15)
  1. CARBOPLATIN [Suspect]
     Active Substance: CARBOPLATIN
     Indication: Lung adenocarcinoma
     Dates: start: 20230109, end: 20230203
  2. BACTRIM [Suspect]
     Active Substance: SULFAMETHOXAZOLE\TRIMETHOPRIM
     Indication: Antibiotic prophylaxis
     Dosage: 800/160 MG 1 CP 3 DAYS/WEEK
     Dates: start: 20230110, end: 20230212
  3. PIPERACILLIN SODIUM\TAZOBACTAM SODIUM [Suspect]
     Active Substance: PIPERACILLIN SODIUM\TAZOBACTAM SODIUM
     Indication: Metastases to meninges
     Dosage: STRENGTH: 4 G/500 MG, 4G / 3 TIMES PER DAY
     Dates: start: 20230207, end: 20230214
  4. ALIMTA [Suspect]
     Active Substance: PEMETREXED DISODIUM
     Indication: Lung adenocarcinoma
     Dates: start: 20230109, end: 20230209
  5. BISOPROLOL [Concomitant]
     Active Substance: BISOPROLOL
  6. KARDEGIC [Concomitant]
     Active Substance: ASPIRIN DL-LYSINE
  7. Solupred [Concomitant]
  8. SIMVASTATIN [Concomitant]
     Active Substance: SIMVASTATIN
  9. OMEPRAZOLE [Concomitant]
     Active Substance: OMEPRAZOLE
  10. FUROSEMIDE [Concomitant]
     Active Substance: FUROSEMIDE
  11. INNOHEP [Concomitant]
     Active Substance: TINZAPARIN SODIUM
  12. LERCANIDIPINE HYDROCHLORIDE [Concomitant]
     Active Substance: LERCANIDIPINE HYDROCHLORIDE
  13. PAROXETINE [Concomitant]
     Active Substance: PAROXETINE
     Dosage: STRENGTH: 20 MG, SCORED FILM-COATED TABLET
  14. RAMIPRIL [Concomitant]
     Active Substance: RAMIPRIL
  15. OXAZEPAM [Concomitant]
     Active Substance: OXAZEPAM

REACTIONS (2)
  - Pancytopenia [Fatal]
  - Toxic epidermal necrolysis [Fatal]

NARRATIVE: CASE EVENT DATE: 20230209
